FAERS Safety Report 12388844 (Version 1)
Quarter: 2016Q2

REPORT INFORMATION
  Report Type: Spontaneous
  Country: US (occurrence: None)
  Receive Date: 20160519
  Receipt Date: 20160519
  Transmission Date: 20160815
  Serious: No
  Sender: FDA-Public Use
  Company Number: None

PATIENT
  Sex: Male
  Weight: 45 kg

DRUGS (2)
  1. NORDITROPIN [Suspect]
     Active Substance: SOMATROPIN
     Indication: DWARFISM
     Dosage: 15MG/1.5ML 6 DAYS A WEEK SQ
     Route: 058
     Dates: start: 20150806
  2. NORDITROPIN [Suspect]
     Active Substance: SOMATROPIN
     Indication: HYPOPITUITARISM
     Dosage: 15MG/1.5ML 6 DAYS A WEEK SQ
     Route: 058
     Dates: start: 20150806

REACTIONS (1)
  - Haemorrhage subcutaneous [None]
